FAERS Safety Report 23325662 (Version 3)
Quarter: 2024Q2

REPORT INFORMATION
  Report Type: Report from Study
  Country: DE (occurrence: DE)
  Receive Date: 20231221
  Receipt Date: 20240402
  Transmission Date: 20240716
  Serious: Yes (Hospitalization, Other)
  Sender: FDA-Public Use
  Company Number: DE-002147023-NVSC2023DE269142

PATIENT
  Age: 33 Year
  Sex: Male
  Weight: 138 kg

DRUGS (2)
  1. COSENTYX [Suspect]
     Active Substance: SECUKINUMAB
     Indication: Hidradenitis
     Dosage: 300 MG, QD
     Route: 058
     Dates: start: 20231019, end: 20231019
  2. COSENTYX [Suspect]
     Active Substance: SECUKINUMAB
     Dosage: 300 MG, QD
     Route: 058
     Dates: start: 20231116, end: 20231116

REACTIONS (2)
  - Groin abscess [Recovering/Resolving]
  - Groin infection [Recovered/Resolved with Sequelae]

NARRATIVE: CASE EVENT DATE: 20231201
